FAERS Safety Report 4278586-X (Version None)
Quarter: 2004Q1

REPORT INFORMATION
  Report Type: 
  Country: None (occurrence: None)
  Receive Date: 20040122
  Receipt Date: 20040108
  Transmission Date: 20041129
  Serious: Yes (Death)
  Sender: FDA-Public Use
  Company Number: 2004-DE-00070GD

PATIENT
  Sex: Female

DRUGS (11)
  1. NEVIRAPINE(NEVIRAPINE) [Suspect]
     Indication: HIV INFECTION
     Dosage: 400 MG
  2. NEFAZODONE HCL [Suspect]
  3. RITONAVIR [Suspect]
     Indication: HIV INFECTION
     Dosage: 600 MG
  4. SAQUINAVIR [Suspect]
     Indication: HIV INFECTION
     Dosage: 1200 MG
  5. LAMOTRIGINE [Suspect]
     Indication: EPILEPSY
     Dosage: DOSE ESACLATION UP TO 1800 MG/DAY
  6. PHENYTOIN [Suspect]
     Indication: EPILEPSY
     Dosage: RT
  7. RISPERIDONE [Suspect]
     Indication: MENTAL DISORDER
     Dosage: 2 MG
  8. QUETIAPINE (QUETIAPINE) [Suspect]
     Indication: MENTAL DISORDER
  9. SERTRALINE HCL [Concomitant]
  10. LORAZEPAM [Concomitant]
  11. GABAPENTIN [Concomitant]

REACTIONS (18)
  - ACUTE RESPIRATORY DISTRESS SYNDROME [None]
  - COMA [None]
  - CONFUSIONAL STATE [None]
  - DRUG INTERACTION [None]
  - DRUG TOXICITY [None]
  - ENCEPHALOPATHY [None]
  - EPILEPSY [None]
  - GRAND MAL CONVULSION [None]
  - HAND FRACTURE [None]
  - HEPATIC FAILURE [None]
  - HEPATIC STEATOSIS [None]
  - HEPATOTOXICITY [None]
  - LIVER FUNCTION TEST ABNORMAL [None]
  - MULTI-ORGAN FAILURE [None]
  - OSTEOPENIA [None]
  - PSYCHOTIC DISORDER [None]
  - SUDDEN DEATH [None]
  - TIBIA FRACTURE [None]
